FAERS Safety Report 4779057-4 (Version None)
Quarter: 2005Q3

REPORT INFORMATION
  Report Type: 
  Country: None (occurrence: None)
  Receive Date: 20050923
  Receipt Date: 20050913
  Transmission Date: 20060218
  Serious: Yes (Other)
  Sender: FDA-Public Use
  Company Number: BR-2005-019193

PATIENT
  Age: 31 Year
  Sex: Female

DRUGS (2)
  1. YASMIN [Suspect]
     Indication: ORAL CONTRACEPTION
     Dosage: 1 TAB (S), ORAL
     Route: 048
     Dates: start: 20040601, end: 20041201
  2. YASMIN [Suspect]
     Indication: ORAL CONTRACEPTION
     Dosage: 1 TAB (S), ORAL
     Route: 048
     Dates: start: 20050601, end: 20050901

REACTIONS (5)
  - BLINDNESS TRANSIENT [None]
  - BREAST SWELLING [None]
  - DIZZINESS [None]
  - HYPOAESTHESIA [None]
  - VISUAL FIELD DEFECT [None]
